FAERS Safety Report 7271919-1 (Version None)
Quarter: 2011Q1

REPORT INFORMATION
  Report Type: 
  Country: None (occurrence: None)
  Receive Date: 20110203
  Receipt Date: 20110128
  Transmission Date: 20110831
  Serious: Yes (Other)
  Sender: FDA-Public Use
  Company Number: GB-PFIZER INC-2010166698

PATIENT
  Sex: Female

DRUGS (2)
  1. LAMOTRIGINE [Suspect]
  2. NEURONTIN [Suspect]

REACTIONS (2)
  - OPTIC NEURITIS [None]
  - RHEUMATOID ARTHRITIS [None]
